FAERS Safety Report 6936556-4 (Version None)
Quarter: 2010Q3

REPORT INFORMATION
  Report Type: 
  Country: None (occurrence: None)
  Receive Date: 20100823
  Receipt Date: 20100811
  Transmission Date: 20110219
  Serious: No
  Sender: FDA-Public Use
  Company Number: CA-JNJFOC-20100707057

PATIENT
  Sex: Male
  Weight: 80.74 kg

DRUGS (6)
  1. DURAGESIC-100 [Suspect]
     Indication: PAIN
     Route: 062
  2. CELEBREX [Concomitant]
     Indication: PAIN
     Route: 065
  3. APO-TRAZODONE [Concomitant]
     Indication: PAIN
     Route: 065
  4. AMITRIPTYLINE HCL [Concomitant]
     Indication: PAIN
     Route: 065
  5. ATACAND HCT [Concomitant]
     Indication: HYPERTENSION
     Route: 065
  6. AMLODIPINE [Concomitant]
     Indication: PRODUCT USED FOR UNKNOWN INDICATION
     Route: 065

REACTIONS (4)
  - DRUG ADMINISTERED AT INAPPROPRIATE SITE [None]
  - HYPERHIDROSIS [None]
  - PAIN [None]
  - THERAPEUTIC RESPONSE DECREASED [None]
